FAERS Safety Report 24607620 (Version 2)
Quarter: 2024Q4

REPORT INFORMATION
  Report Type: Spontaneous
  Country: ES (occurrence: ES)
  Receive Date: 20241112
  Receipt Date: 20241115
  Transmission Date: 20250115
  Serious: Yes (Other)
  Sender: REGENERON
  Company Number: GB-BAYER-2024A155037

PATIENT
  Age: 83 Year
  Sex: Female

DRUGS (8)
  1. EYLEA [Suspect]
     Active Substance: AFLIBERCEPT
     Indication: Neovascular age-related macular degeneration
     Dosage: UNK, ONCE, SOLUTION FOR INJECTION, 40 MG/ML
     Dates: start: 20231128, end: 20231128
  2. EYLEA [Suspect]
     Active Substance: AFLIBERCEPT
     Dosage: UNK, ONCE, SOLUTION FOR INJECTION, 40 MG/ML
     Dates: start: 202401, end: 202401
  3. EYLEA [Suspect]
     Active Substance: AFLIBERCEPT
     Dosage: UNK, ONCE, SOLUTION FOR INJECTION, 40 MG/ML
     Dates: start: 202404, end: 202404
  4. EYLEA [Suspect]
     Active Substance: AFLIBERCEPT
     Dosage: UNK, ONCE, SOLUTION FOR INJECTION, 40 MG/ML
     Dates: start: 202404, end: 202404
  5. EYLEA [Suspect]
     Active Substance: AFLIBERCEPT
     Dosage: UNK, ONCE, SOLUTION FOR INJECTION, 40 MG/ML
     Dates: start: 20241008, end: 20241008
  6. EYLEA [Suspect]
     Active Substance: AFLIBERCEPT
     Dosage: BOTH EYES, SOLUTION FOR INJECTION, 40 MG/ML
  7. EYLEA [Suspect]
     Active Substance: AFLIBERCEPT
     Indication: Neovascular age-related macular degeneration
     Dosage: UNK, SOLUTION FOR INJECTION, 40 MG/ML
     Dates: start: 20240620, end: 20240620
  8. SIMVASTATIN [Concomitant]
     Active Substance: SIMVASTATIN
     Indication: Product used for unknown indication
     Dosage: UNK

REACTIONS (11)
  - Age-related macular degeneration [Unknown]
  - Iridocyclitis [Recovered/Resolved]
  - Uveitis [Recovered/Resolved]
  - Uveitis [Recovered/Resolved]
  - Endophthalmitis [Recovered/Resolved]
  - Discomfort [Recovered/Resolved]
  - Visual impairment [Recovered/Resolved]
  - Deposit eye [Recovered/Resolved]
  - Vision blurred [Recovered/Resolved]
  - Vitreous floaters [Recovered/Resolved]
  - Vision blurred [Recovered/Resolved]

NARRATIVE: CASE EVENT DATE: 20240601
